FAERS Safety Report 25888671 (Version 1)
Quarter: 2025Q4

REPORT INFORMATION
  Report Type: Spontaneous
  Country: CN (occurrence: CN)
  Receive Date: 20251007
  Receipt Date: 20251007
  Transmission Date: 20260117
  Serious: Yes (Hospitalization)
  Sender: STRIDES
  Company Number: CN-STRIDES ARCOLAB LIMITED-2025SP012606

PATIENT
  Age: 53 Year
  Sex: Female

DRUGS (4)
  1. AZITHROMYCIN [Suspect]
     Active Substance: AZITHROMYCIN
     Indication: Anti-infective therapy
     Dosage: 500 MILLIGRAM, OD
     Route: 048
  2. IMIPENEM AND CILASTATIN [Suspect]
     Active Substance: CILASTATIN SODIUM\IMIPENEM
     Indication: Anti-infective therapy
     Dosage: 1 GRAM, EVERY 12 HRS
     Route: 042
  3. AMIKACIN [Suspect]
     Active Substance: AMIKACIN
     Indication: Anti-infective therapy
     Dosage: 750 MILLIGRAM, OD
     Route: 042
  4. LICORICE [Suspect]
     Active Substance: LICORICE
     Indication: Bronchiectasis
     Dosage: UNK
     Route: 065

REACTIONS (1)
  - Trichoglossia [Recovered/Resolved]
